FAERS Safety Report 6917774-8 (Version None)
Quarter: 2010Q3

REPORT INFORMATION
  Report Type: 
  Country: None (occurrence: None)
  Receive Date: 20100810
  Receipt Date: 20100728
  Transmission Date: 20110219
  Serious: Yes (Other)
  Sender: FDA-Public Use
  Company Number: US-PFIZER INC-2010085525

PATIENT
  Sex: Male
  Weight: 90 kg

DRUGS (3)
  1. LYRICA [Suspect]
     Indication: FIBROMYALGIA
     Dosage: 50 MG, DAILY
     Dates: start: 20100301
  2. LYRICA [Suspect]
     Indication: CHEMOTHERAPY
     Dosage: 50 MG, 2X/DAY
  3. LORAZEPAM [Concomitant]
     Indication: HYPERTENSION
     Dosage: UNK

REACTIONS (4)
  - HYPERPHAGIA [None]
  - NEOPLASM MALIGNANT [None]
  - SOMNOLENCE [None]
  - WEIGHT INCREASED [None]
